FAERS Safety Report 15426505 (Version 1)
Quarter: 2018Q3

REPORT INFORMATION
  Report Type: Spontaneous
  Country: US (occurrence: US)
  Receive Date: 20180925
  Receipt Date: 20180925
  Transmission Date: 20181010
  Serious: No
  Sender: FDA-Public Use
  Company Number: US-INDIVIOR LIMITED-INDV-105238-2017

PATIENT
  Age: 54 Year
  Sex: Male

DRUGS (10)
  1. HEROIN [Suspect]
     Active Substance: DIAMORPHINE
     Indication: PRODUCT USED FOR UNKNOWN INDICATION
     Dosage: UNK
     Route: 065
  2. OPIOIDS [Suspect]
     Active Substance: UNSPECIFIED INGREDIENT
     Indication: PRODUCT USED FOR UNKNOWN INDICATION
     Dosage: UNK
     Route: 065
  3. SUBOXONE [Suspect]
     Active Substance: BUPRENORPHINE HYDROCHLORIDE\NALOXONE HYDROCHLORIDE
     Dosage: TEN 8MG FILMS (80MG) IN EIGHT HOURS
     Route: 060
     Dates: start: 2016
  4. OXYCODONE [Concomitant]
     Active Substance: OXYCODONE
     Dosage: 20MG; 120 TABLETS A MONTH
     Route: 065
  5. MARIJUANA [Suspect]
     Active Substance: CANNABIS SATIVA SUBSP. INDICA TOP
     Indication: PRODUCT USED FOR UNKNOWN INDICATION
     Dosage: TAKING EVERY 6 MOMTHS OR SO
     Route: 065
  6. ANALGESICS [Suspect]
     Active Substance: UNSPECIFIED INGREDIENT
     Indication: PRODUCT USED FOR UNKNOWN INDICATION
     Dosage: UNK
     Route: 065
  7. FENTANYL. [Concomitant]
     Active Substance: FENTANYL
     Indication: PRODUCT USED FOR UNKNOWN INDICATION
     Dosage: 100MG PATCH; 10 PATCHES A MONTH
     Route: 062
  8. FENTANYL. [Concomitant]
     Active Substance: FENTANYL
     Dosage: 50MCG PATCH; 10 PATCHES A MONTH
     Route: 062
  9. SUBOXONE [Suspect]
     Active Substance: BUPRENORPHINE HYDROCHLORIDE\NALOXONE HYDROCHLORIDE
     Indication: DRUG DEPENDENCE
     Dosage: 8 MG
     Route: 060
  10. OXYCODONE [Concomitant]
     Active Substance: OXYCODONE
     Indication: PRODUCT USED FOR UNKNOWN INDICATION
     Dosage: 30MG; 150 TABLETS A WEEK
     Route: 065

REACTIONS (7)
  - Loss of personal independence in daily activities [Unknown]
  - Substance abuse [Unknown]
  - Nausea [Unknown]
  - Feeling abnormal [Unknown]
  - Overdose [Unknown]
  - Drug withdrawal syndrome [Recovered/Resolved]
  - Pain [Unknown]
